FAERS Safety Report 8972477 (Version 1)
Quarter: 2012Q4

REPORT INFORMATION
  Report Type: Spontaneous
  Country: IT (occurrence: None)
  Receive Date: 20121207
  Receipt Date: 20121207
  Transmission Date: 20130627
  Serious: Yes (Other)
  Sender: FDA-Public Use
  Company Number: A-12-053

PATIENT
  Age: 9 Year
  Sex: Female

DRUGS (3)
  1. SALBUTAMOL [Suspect]
     Indication: ASTHMA
     Dosage: 6 mg/day, unknow, 054
  2. SALBUTAMOL [Suspect]
     Indication: COUGH
     Dosage: 6 mg/day, unknow, 054
  3. BECLOMETHASONE [Concomitant]

REACTIONS (1)
  - Cystitis haemorrhagic [None]
